FAERS Safety Report 14193346 (Version 6)
Quarter: 2018Q1

REPORT INFORMATION
  Report Type: Report from Study
  Country: US (occurrence: US)
  Receive Date: 20171115
  Receipt Date: 20180327
  Transmission Date: 20180508
  Serious: Yes (Hospitalization, Other)
  Sender: FDA-Public Use
  Company Number: US-ALEXION PHARMACEUTICALS INC.-A201712191

PATIENT
  Sex: Female
  Weight: 88.89 kg

DRUGS (3)
  1. SOLIRIS [Suspect]
     Active Substance: ECULIZUMAB
     Dosage: UNK UNK, Q2W
     Route: 042
     Dates: start: 20171020, end: 20180213
  2. SOLIRIS [Suspect]
     Active Substance: ECULIZUMAB
     Dosage: 1200 MG, QW
     Route: 042
     Dates: start: 20171020, end: 20171117
  3. SOLIRIS [Suspect]
     Active Substance: ECULIZUMAB
     Indication: ATYPICAL HAEMOLYTIC URAEMIC SYNDROME
     Dosage: 900 MG, QW
     Route: 042
     Dates: start: 20171020, end: 20171103

REACTIONS (25)
  - Eructation [Unknown]
  - Retching [Unknown]
  - Pain [Unknown]
  - Motion sickness [Unknown]
  - Abdominal pain lower [Not Recovered/Not Resolved]
  - Dizziness [Not Recovered/Not Resolved]
  - Diarrhoea [Not Recovered/Not Resolved]
  - White blood cell count decreased [Unknown]
  - Chronic kidney disease [Unknown]
  - Abdominal tenderness [Not Recovered/Not Resolved]
  - Vomiting [Unknown]
  - Thrombosis in device [Unknown]
  - Nausea [Not Recovered/Not Resolved]
  - Weight decreased [Unknown]
  - Restless legs syndrome [Unknown]
  - Platelet count decreased [Unknown]
  - Haematuria [Unknown]
  - Urinary tract infection [Unknown]
  - Headache [Not Recovered/Not Resolved]
  - Flatulence [Unknown]
  - Dysphagia [Not Recovered/Not Resolved]
  - Haematochezia [Unknown]
  - Constipation [Unknown]
  - Vomiting projectile [Unknown]
  - Asthenia [Not Recovered/Not Resolved]

NARRATIVE: CASE EVENT DATE: 20171020
